FAERS Safety Report 10108610 (Version 1)
Quarter: 2014Q2

REPORT INFORMATION
  Report Type: Spontaneous
  Country: FR (occurrence: FR)
  Receive Date: 20140425
  Receipt Date: 20140425
  Transmission Date: 20141212
  Serious: Yes (Death, Hospitalization)
  Sender: FDA-Public Use
  Company Number: FR-BRISTOL-MYERS SQUIBB COMPANY-20637732

PATIENT
  Age: 85 Year
  Sex: Female

DRUGS (2)
  1. COUMADINE [Suspect]
     Indication: ATRIAL FIBRILLATION
     Route: 048
  2. LOVENOX [Suspect]
     Indication: ATRIAL FIBRILLATION
     Dates: end: 20121114

REACTIONS (3)
  - Death [Fatal]
  - Melaena [Unknown]
  - Anaemia [Unknown]
